FAERS Safety Report 5037421-2 (Version None)
Quarter: 2006Q2

REPORT INFORMATION
  Report Type: 
  Country: None (occurrence: None)
  Receive Date: 20060628
  Receipt Date: 20060626
  Transmission Date: 20061013
  Serious: Yes (Hospitalization)
  Sender: FDA-Public Use
  Company Number: 2006PK01367

PATIENT
  Age: 39 Year
  Sex: Male

DRUGS (4)
  1. BELOC  ZOK [Interacting]
     Route: 048
     Dates: start: 20050101
  2. NEUROCIL [Suspect]
     Route: 048
     Dates: start: 20050512, end: 20051103
  3. SYMBICORT [Concomitant]
     Route: 055
     Dates: start: 19980101
  4. THEOPHYLLINE [Concomitant]
     Route: 048
     Dates: start: 19980101

REACTIONS (3)
  - AGRANULOCYTOSIS [None]
  - DRUG INTERACTION [None]
  - DRUG LEVEL INCREASED [None]
